FAERS Safety Report 7163452-2 (Version None)
Quarter: 2010Q4

REPORT INFORMATION
  Report Type: 
  Country: None (occurrence: None)
  Receive Date: 20101215
  Receipt Date: 20100419
  Transmission Date: 20110411
  Serious: Yes (Other)
  Sender: FDA-Public Use
  Company Number: SE-PFIZER INC-2010047555

PATIENT
  Age: 41 Year
  Sex: Male

DRUGS (2)
  1. LYRICA [Suspect]
     Indication: NEURALGIA
     Dosage: 150 MG, 2X/DAY
     Route: 048
     Dates: start: 20090901, end: 20091124
  2. ACETAMINOPHEN [Concomitant]
     Dosage: 1330 MG, 3X/DAY

REACTIONS (2)
  - HEARING IMPAIRED [None]
  - TINNITUS [None]
